FAERS Safety Report 6779281-5 (Version None)
Quarter: 2010Q2

REPORT INFORMATION
  Report Type: 
  Country: None (occurrence: None)
  Receive Date: 20100618
  Receipt Date: 20100610
  Transmission Date: 20101027
  Serious: Yes (Other)
  Sender: FDA-Public Use
  Company Number: US-ROCHE-709658

PATIENT
  Sex: Female
  Weight: 97.5 kg

DRUGS (2)
  1. CAPECITABINE [Suspect]
     Indication: BREAST CANCER
     Dosage: ROUTE: MOUTH
     Route: 048
     Dates: start: 20100411, end: 20100530
  2. COUMADIN [Suspect]
     Indication: DRUG USE FOR UNKNOWN INDICATION
     Route: 065

REACTIONS (2)
  - CEREBRAL HAEMORRHAGE [None]
  - TRANSIENT ISCHAEMIC ATTACK [None]
